FAERS Safety Report 4976096-5 (Version None)
Quarter: 2006Q2

REPORT INFORMATION
  Report Type: 
  Country: None (occurrence: None)
  Receive Date: 20060413
  Receipt Date: 20060329
  Transmission Date: 20061013
  Serious: Yes (Death)
  Sender: FDA-Public Use
  Company Number: 2006RR-01881

PATIENT
  Age: 48 Year
  Sex: Female

DRUGS (1)
  1. METFORMIN HCL [Suspect]

REACTIONS (3)
  - HYPOGLYCAEMIA [None]
  - LACTIC ACIDOSIS [None]
  - RENAL FAILURE [None]
